FAERS Safety Report 7842908-0 (Version None)
Quarter: 2011Q4

REPORT INFORMATION
  Report Type: 
  Country: None (occurrence: None)
  Receive Date: 20111025
  Receipt Date: 20100629
  Transmission Date: 20120403
  Serious: No
  Sender: FDA-Public Use
  Company Number: US-BAYER-201027052NA

PATIENT
  Sex: Female
  Weight: 95.3 kg

DRUGS (4)
  1. CIPROFLOXACIN [Suspect]
     Indication: SINUSITIS
     Dosage: UNK
     Dates: start: 20100501, end: 20100501
  2. CICLESONIDE [Concomitant]
     Indication: SINUSITIS
     Dosage: UNK
     Dates: start: 20100501
  3. HYDROCODONE BITARTRATE [Concomitant]
  4. MUCINEX [Concomitant]
     Indication: SINUSITIS
     Dosage: UNK
     Dates: start: 20100501

REACTIONS (2)
  - FOREIGN BODY SENSATION IN EYES [None]
  - ABDOMINAL PAIN UPPER [None]
